FAERS Safety Report 10078879 (Version 1)
Quarter: 2014Q2

REPORT INFORMATION
  Report Type: Spontaneous
  Country: JP (occurrence: None)
  Receive Date: 20140411
  Receipt Date: 20140411
  Transmission Date: 20141212
  Serious: Yes (Hospitalization)
  Sender: FDA-Public Use
  Company Number: JP-015219

PATIENT
  Age: 76 Year
  Sex: Male

DRUGS (3)
  1. DEGARELIX (FIRMAGON) 80 MG [Suspect]
     Indication: PRODUCT USED FOR UNKNOWN INDICATION
     Dates: end: 201401
  2. WARFARIN [Concomitant]
  3. DRUGS USED IN DIABETES [Concomitant]

REACTIONS (1)
  - Cardiac failure [None]
